FAERS Safety Report 19758493 (Version 1)
Quarter: 2021Q3

REPORT INFORMATION
  Report Type: Spontaneous
  Country: CN (occurrence: CN)
  Receive Date: 20210827
  Receipt Date: 20210827
  Transmission Date: 20211014
  Serious: Yes (Hospitalization, Other)
  Sender: FDA-Public Use
  Company Number: CN-009507513-2108CHN006939

PATIENT
  Age: 86 Year
  Sex: Female
  Weight: 50 kg

DRUGS (4)
  1. GLIMEPIRIDE. [Suspect]
     Active Substance: GLIMEPIRIDE
     Dosage: 4 MG, TWICE IN A DAY
     Route: 048
     Dates: start: 20210513, end: 20210818
  2. DAPAGLIFLOZIN. [Suspect]
     Active Substance: DAPAGLIFLOZIN
     Indication: DIABETES MELLITUS
     Dosage: 10 MG, ONCE IN A DAY
     Route: 048
     Dates: start: 20210513, end: 20210818
  3. JANUVIA [Suspect]
     Active Substance: SITAGLIPTIN PHOSPHATE
     Indication: DIABETES MELLITUS
     Dosage: 100 MG, ONCE IN A DAY
     Route: 048
     Dates: start: 20210513, end: 20210818
  4. GLIMEPIRIDE. [Suspect]
     Active Substance: GLIMEPIRIDE
     Indication: DIABETES MELLITUS
     Dosage: 4 MG, TWICE IN A DAY
     Route: 048
     Dates: start: 20210513, end: 20210818

REACTIONS (4)
  - Diabetes mellitus [Unknown]
  - Hypoglycaemia [Recovering/Resolving]
  - Asthenia [Recovering/Resolving]
  - Hyperhidrosis [Recovering/Resolving]

NARRATIVE: CASE EVENT DATE: 202108
